FAERS Safety Report 24095238 (Version 4)
Quarter: 2024Q4

REPORT INFORMATION
  Report Type: Report from Study
  Country: US (occurrence: US)
  Receive Date: 20240716
  Receipt Date: 20241031
  Transmission Date: 20250114
  Serious: Yes (Hospitalization, Other)
  Sender: UCB
  Company Number: US-UCBSA-2024004909

PATIENT
  Sex: Female

DRUGS (8)
  1. FINTEPLA [Suspect]
     Active Substance: FENFLURAMINE
     Indication: Lennox-Gastaut syndrome
     Dosage: TITRATING UP TO 5.9 ML BID
     Route: 048
     Dates: start: 20240113, end: 2024
  2. FINTEPLA [Suspect]
     Active Substance: FENFLURAMINE
     Dosage: 5.9 MILLILITER, 2X/DAY (BID)
     Route: 048
     Dates: start: 2024, end: 2024
  3. FINTEPLA [Suspect]
     Active Substance: FENFLURAMINE
     Dosage: 3 MILLILITER, 2X/DAY (BID)
     Route: 048
     Dates: start: 2024, end: 2024
  4. FINTEPLA [Suspect]
     Active Substance: FENFLURAMINE
     Dosage: 3.5 MILLILITER, 2X/DAY (BID)
     Route: 048
     Dates: start: 2024
  5. FINTEPLA [Suspect]
     Active Substance: FENFLURAMINE
     Dosage: 3.5 MILLILITER, 2X/DAY (BID)
     Route: 048
     Dates: start: 2024
  6. FINTEPLA [Suspect]
     Active Substance: FENFLURAMINE
     Dosage: 4.5 MILLILITER, 2X/DAY (BID)
     Route: 048
     Dates: start: 2024
  7. FINTEPLA [Suspect]
     Active Substance: FENFLURAMINE
     Dosage: 4.7 MILLILITER, 2X/DAY (BID)
     Route: 048
     Dates: start: 20240113
  8. ZONEGRAN [Suspect]
     Active Substance: ZONISAMIDE
     Indication: Product used for unknown indication
     Dosage: UNK

REACTIONS (14)
  - Fall [Recovered/Resolved]
  - Cervical vertebral fracture [Recovered/Resolved]
  - Clavicle fracture [Not Recovered/Not Resolved]
  - Suture insertion [Not Recovered/Not Resolved]
  - Seizure [Not Recovered/Not Resolved]
  - Omphalitis [Recovered/Resolved]
  - Hospitalisation [Not Recovered/Not Resolved]
  - Mitral valve incompetence [Not Recovered/Not Resolved]
  - Lethargy [Not Recovered/Not Resolved]
  - Fatigue [Not Recovered/Not Resolved]
  - Hypotonia [Not Recovered/Not Resolved]
  - Dizziness [Not Recovered/Not Resolved]
  - Hypohidrosis [Unknown]
  - Pollakiuria [Unknown]

NARRATIVE: CASE EVENT DATE: 20240101
